FAERS Safety Report 9731915 (Version 2)
Quarter: 2014Q2

REPORT INFORMATION
  Report Type: Spontaneous
  Country: US (occurrence: US)
  Receive Date: 20131205
  Receipt Date: 20140607
  Transmission Date: 20141212
  Serious: Yes (Death, Hospitalization, Other)
  Sender: FDA-Public Use
  Company Number: PHEH2013US024470

PATIENT
  Age: 71 Year
  Sex: Female

DRUGS (16)
  1. ZOMETA [Suspect]
     Dosage: UNK UKN, MONTHLY
  2. SUTENT [Suspect]
     Dosage: 37.5 MG, DAILY
     Dates: start: 20130902
  3. SUTENT [Suspect]
     Dosage: 37.5 MG, 2 WEEKS ON AND 1 WEEK OFF
  4. PLAVIX [Concomitant]
     Dosage: 75 MG, DAILY
  5. TORSEMIDE [Concomitant]
     Dosage: 20 MG, AS NEEDED
  6. ANTIDIARRHEAL [Concomitant]
     Dosage: UNK UKN, AS NEEDED
  7. PANCREASE [Concomitant]
     Dosage: UNK UKN, BEFORE MEALS
  8. POTASSIUM [Concomitant]
     Dosage: UNK UKN, UNK
  9. MAGNESIUM OXIDE [Concomitant]
     Dosage: 400 MG, DAILY
     Route: 048
  10. CIPRO//CIPROFLOXACIN [Concomitant]
     Dosage: 500 MG, BID
     Route: 048
  11. HYDROCODONE [Concomitant]
     Dosage: UNK UKN, (10/500 AS NEEDED)
  12. PHENERGAN//PROMETHAZINE [Concomitant]
     Dosage: 25 MG, AS NEEDED
     Route: 048
  13. ENDOCET [Concomitant]
     Dosage: 10/325 MG, AS NEEDED
  14. AMLODIPINE [Concomitant]
     Dosage: 10 MG, BID
     Route: 048
  15. SIMVASTATIN [Concomitant]
     Dosage: 40 MG, AT BEDTIME
  16. MORPHINE [Concomitant]
     Dosage: UNK UKN, UNK

REACTIONS (18)
  - Death [Fatal]
  - Renal neoplasm [Unknown]
  - Wound infection [Unknown]
  - Peripheral venous disease [Unknown]
  - Diarrhoea [Recovered/Resolved]
  - Nausea [Recovered/Resolved]
  - Vomiting [Unknown]
  - Dehydration [Unknown]
  - Constipation [Unknown]
  - Electrolyte imbalance [Unknown]
  - Lung disorder [Unknown]
  - Pain [Unknown]
  - Blister [Recovered/Resolved]
  - Skin exfoliation [Unknown]
  - Skin ulcer [Unknown]
  - Blood pressure fluctuation [Unknown]
  - Oral pain [Unknown]
  - Bone pain [Unknown]
